FAERS Safety Report 10353004 (Version 1)
Quarter: 2014Q3

REPORT INFORMATION
  Report Type: Spontaneous
  Country: CH (occurrence: CH)
  Receive Date: 20140730
  Receipt Date: 20140730
  Transmission Date: 20150326
  Serious: Yes (Other)
  Sender: FDA-Public Use
  Company Number: CH-ABBVIE-14P-151-1266497-00

PATIENT
  Age: 56 Year
  Sex: Female

DRUGS (9)
  1. PANTOZOL [Concomitant]
     Active Substance: PANTOPRAZOLE SODIUM
     Indication: PRODUCT USED FOR UNKNOWN INDICATION
     Route: 048
  2. NOVALGIN [Suspect]
     Active Substance: METAMIZOLE SODIUM
     Indication: POSTOPERATIVE ANALGESIA
     Route: 048
     Dates: start: 20140616
  3. DAFALGAN [Concomitant]
     Active Substance: ACETAMINOPHEN
     Indication: PRODUCT USED FOR UNKNOWN INDICATION
     Route: 048
  4. CLEXANE [Suspect]
     Active Substance: ENOXAPARIN SODIUM
     Indication: THROMBOSIS PROPHYLAXIS
     Route: 058
     Dates: start: 20140617, end: 20140701
  5. BELOC [Suspect]
     Active Substance: METOPROLOL TARTRATE
     Indication: CARDIAC FUNCTION DISTURBANCE POSTOPERATIVE
     Route: 048
     Dates: start: 201406
  6. KLACID [Suspect]
     Active Substance: CLARITHROMYCIN
     Indication: ANTIBIOTIC PROPHYLAXIS
     Route: 048
     Dates: start: 20140616, end: 20140626
  7. AUGMENTIN [Suspect]
     Active Substance: AMOXICILLIN\CLAVULANATE POTASSIUM
     Indication: THROMBOSIS PROPHYLAXIS
     Dosage: 125MG/875MG; DAILY DOSE: 2 GRAM
     Route: 048
     Dates: start: 20140616, end: 20140626
  8. SIMVASTATIN STREULI [Concomitant]
     Indication: PRODUCT USED FOR UNKNOWN INDICATION
  9. SANDOZ AMLODIPINE [Concomitant]
     Indication: PRODUCT USED FOR UNKNOWN INDICATION
     Route: 048

REACTIONS (3)
  - Rash macular [Unknown]
  - Application site rash [Unknown]
  - Skin burning sensation [Unknown]

NARRATIVE: CASE EVENT DATE: 20140629
